FAERS Safety Report 4266112-0 (Version None)
Quarter: 2004Q1

REPORT INFORMATION
  Report Type: 
  Country: None (occurrence: None)
  Receive Date: 20040106
  Receipt Date: 20031224
  Transmission Date: 20041129
  Serious: Yes (Other)
  Sender: FDA-Public Use
  Company Number: BE-JNJFOC-20031203478

PATIENT
  Age: 61 Year
  Weight: 86 kg

DRUGS (5)
  1. SPORANOX [Suspect]
     Indication: SEBORRHOEIC DERMATITIS
     Dosage: 100 MG, 2 IN 1 DAY, ORAL
     Route: 048
     Dates: start: 20020114
  2. MARCUMAR [Concomitant]
  3. EUGLUCON (GLIBENCLAMIDE) [Concomitant]
  4. GLUCOPHAGE [Concomitant]
  5. SOTALOL HCL [Concomitant]

REACTIONS (1)
  - ARRHYTHMIA [None]
